FAERS Safety Report 23656609 (Version 1)
Quarter: 2024Q1

REPORT INFORMATION
  Report Type: Spontaneous
  Country: IT (occurrence: IT)
  Receive Date: 20240321
  Receipt Date: 20240321
  Transmission Date: 20240410
  Serious: Yes (Hospitalization)
  Sender: FDA-Public Use
  Company Number: IT-SUN PHARMACEUTICAL INDUSTRIES LTD-2024RR-437766

PATIENT
  Age: 1 Month
  Sex: Male

DRUGS (3)
  1. MORPHINE [Suspect]
     Active Substance: MORPHINE
     Indication: Product used for unknown indication
     Dosage: 10MG/ML - CYCLIC
     Route: 040
     Dates: start: 20231124, end: 20231124
  2. ACETAMINOPHEN [Concomitant]
     Active Substance: ACETAMINOPHEN
     Indication: Patent ductus arteriosus
     Dosage: 15 MILLIGRAM/KILOGRAM
     Route: 040
     Dates: start: 20231005, end: 20231005
  3. IBUPROFEN [Concomitant]
     Active Substance: IBUPROFEN
     Indication: Patent ductus arteriosus
     Dosage: UNK
     Route: 040

REACTIONS (5)
  - Oxygen saturation decreased [Recovered/Resolved]
  - Bradypnoea [Recovered/Resolved]
  - PCO2 increased [Recovered/Resolved]
  - Accidental overdose [Recovered/Resolved with Sequelae]
  - Medication error [Recovered/Resolved with Sequelae]

NARRATIVE: CASE EVENT DATE: 20231124
